FAERS Safety Report 10089852 (Version 1)
Quarter: 2014Q2

REPORT INFORMATION
  Report Type: Spontaneous
  Country: US (occurrence: US)
  Receive Date: 20140421
  Receipt Date: 20140421
  Transmission Date: 20141212
  Serious: No
  Sender: FDA-Public Use
  Company Number: US-ABBVIE-13P-163-1132163-00

PATIENT
  Sex: Female
  Weight: 29.06 kg

DRUGS (1)
  1. LUPRON DEPOT-PED [Suspect]
     Indication: PRODUCT USED FOR UNKNOWN INDICATION
     Route: 030

REACTIONS (4)
  - Incorrect dose administered [Unknown]
  - Drug dispensing error [Unknown]
  - Puberty [Unknown]
  - Drug ineffective [Unknown]
